FAERS Safety Report 5472205-2 (Version None)
Quarter: 2007Q3

REPORT INFORMATION
  Report Type: 
  Country: None (occurrence: None)
  Receive Date: 20070926
  Receipt Date: 20070913
  Transmission Date: 20080115
  Serious: Yes (Hospitalization)
  Sender: FDA-Public Use
  Company Number: 8023749

PATIENT
  Age: 24 Year
  Sex: Female

DRUGS (3)
  1. KEPPRA [Suspect]
     Indication: EPILEPSY
     Dosage: TRP
     Route: 064
     Dates: end: 20070420
  2. FOLIC ACID [Concomitant]
  3. PRENATAL VITAMINS [Concomitant]

REACTIONS (5)
  - DRUG EXPOSURE DURING PREGNANCY [None]
  - HEARING IMPAIRED [None]
  - PRE-ECLAMPSIA [None]
  - PREMATURE LABOUR [None]
  - PULMONARY THROMBOSIS [None]
